FAERS Safety Report 14781108 (Version 1)
Quarter: 2018Q2

REPORT INFORMATION
  Report Type: Spontaneous
  Country: CH (occurrence: CH)
  Receive Date: 20180419
  Receipt Date: 20180419
  Transmission Date: 20180711
  Serious: Yes (Other)
  Sender: FDA-Public Use
  Company Number: CH-TEVA-2018-CH-882383

PATIENT
  Age: 38 Year
  Sex: Male

DRUGS (5)
  1. DOLOPHINE [Concomitant]
     Active Substance: METHADONE HYDROCHLORIDE
     Route: 065
  2. VANCOCIN [Suspect]
     Active Substance: VANCOMYCIN HYDROCHLORIDE
     Indication: OSTEOMYELITIS
     Route: 041
     Dates: start: 20111017, end: 20111107
  3. NOVALGIN (METAMIZOLE SODIUM) [Suspect]
     Active Substance: METAMIZOLE SODIUM
     Indication: PROCEDURAL PAIN
     Route: 048
     Dates: start: 20111004, end: 20111107
  4. DALTEPARIN [Concomitant]
     Active Substance: DALTEPARIN
     Route: 065
  5. PANTOZOL [Suspect]
     Active Substance: PANTOPRAZOLE SODIUM
     Route: 048
     Dates: end: 20111107

REACTIONS (1)
  - Agranulocytosis [Recovered/Resolved]

NARRATIVE: CASE EVENT DATE: 20111107
